FAERS Safety Report 24938982 (Version 1)
Quarter: 2025Q1

REPORT INFORMATION
  Report Type: Spontaneous
  Country: US (occurrence: US)
  Receive Date: 20250206
  Receipt Date: 20250206
  Transmission Date: 20250408
  Serious: No
  Sender: PFIZER
  Company Number: US-PFIZER INC-202500023527

PATIENT
  Age: 41 Year
  Sex: Male

DRUGS (1)
  1. EUCRISA [Suspect]
     Active Substance: CRISABOROLE
     Indication: Dermatitis atopic
     Dosage: UNK, 2X/DAY (APPLY TO ITCHING AREAS/AFFECTED AREAS OF ECZEMA ON THE FACE THE BODY AND EXTREMITIES)
     Route: 061

REACTIONS (1)
  - Treatment failure [Unknown]
